FAERS Safety Report 5701814-8 (Version None)
Quarter: 2008Q2

REPORT INFORMATION
  Report Type: 
  Country: None (occurrence: None)
  Receive Date: 20080410
  Receipt Date: 20080410
  Transmission Date: 20081010
  Serious: No
  Sender: FDA-Public Use
  Company Number: None

PATIENT
  Sex: Male
  Weight: 27.2158 kg

DRUGS (2)
  1. SINGULAIR [Suspect]
     Indication: ASTHMA
     Dosage: 1TABLET BEDTIME
     Dates: start: 20050601, end: 20080301
  2. SINGULAIR [Suspect]
     Indication: HYPERSENSITIVITY
     Dosage: 1TABLET BEDTIME
     Dates: start: 20050601, end: 20080301

REACTIONS (4)
  - HEADACHE [None]
  - HYPOAESTHESIA [None]
  - MUSCLE SPASMS [None]
  - SOCIAL AVOIDANT BEHAVIOUR [None]
